FAERS Safety Report 20847613 (Version 10)
Quarter: 2024Q3

REPORT INFORMATION
  Report Type: Report from Study
  Country: DE (occurrence: DE)
  Receive Date: 20220519
  Receipt Date: 20240927
  Transmission Date: 20241017
  Serious: No
  Sender: ROCHE
  Company Number: DE-ROCHE-2695349

PATIENT
  Age: 23 Year
  Sex: Female

DRUGS (5)
  1. OCREVUS [Suspect]
     Active Substance: OCRELIZUMAB
     Indication: Relapsing-remitting multiple sclerosis
     Dosage: 600 MG 1 IN 182 DAYS
     Route: 042
     Dates: start: 20201008, end: 20220928
  2. OCREVUS [Suspect]
     Active Substance: OCRELIZUMAB
     Route: 042
     Dates: start: 20210412
  3. OFATUMUMAB [Suspect]
     Active Substance: OFATUMUMAB
     Indication: Product used for unknown indication
     Dosage: START DATE: 28-SEP-2022
     Route: 065
  4. MODERNA COVID-19 VACCINE [Suspect]
     Active Substance: ELASOMERAN
     Indication: COVID-19 prophylaxis
     Dosage: 1ST DOSE OF MRNA VACCINE?THERAPY START DATE : 25-JUL-2021
     Route: 065
  5. PREGABALIN [Concomitant]
     Active Substance: PREGABALIN
     Dosage: TO SUPPRESS THE SENSATION DISORDERS THAT SHE ALSO HAD BEFORE THE THERAPY? FREQUENCY TEXT:1-0-1

REACTIONS (17)
  - Fatigue [Recovered/Resolved]
  - Hypoaesthesia [Recovered/Resolved]
  - Erythema [Unknown]
  - Body temperature increased [Unknown]
  - Arthralgia [Recovered/Resolved]
  - Raynaud^s phenomenon [Unknown]
  - Sensory disturbance [Recovered/Resolved]
  - Therapeutic product effect decreased [Recovered/Resolved]
  - Muscle disorder [Recovered/Resolved]
  - Myalgia [Recovered/Resolved]
  - Movement disorder [Recovered/Resolved]
  - Oropharyngeal pain [Recovered/Resolved]
  - Temperature intolerance [Recovered/Resolved]
  - COVID-19 [Recovered/Resolved]
  - Nasopharyngitis [Not Recovered/Not Resolved]
  - Fatigue [Recovered/Resolved]
  - Maternal exposure before pregnancy [Unknown]

NARRATIVE: CASE EVENT DATE: 20201009
